FAERS Safety Report 9768894 (Version 1)
Quarter: 2013Q3

REPORT INFORMATION
  Report Type: Spontaneous
  Country: RU (occurrence: None)
  Receive Date: 20130828
  Receipt Date: 20130828
  Transmission Date: 20140515
  Serious: Yes (Hospitalization)
  Sender: FDA-Public Use
  Company Number: 251-21880-12022551

PATIENT
  Age: 70 Year
  Sex: Male
  Weight: 81 kg

DRUGS (13)
  1. REVLIMID [Suspect]
     Indication: PLASMA CELL MYELOMA
     Route: 048
     Dates: start: 20111122, end: 20111212
  2. CARFILZOMIB [Suspect]
     Indication: PLASMA CELL MYELOMA
  3. DEXAMETHASONE [Suspect]
     Indication: PLASMA CELL MYELOMA
     Dosage: 4 IN 28 D
     Dates: start: 20111122, end: 20111213
  4. DEXAMETHASONE [Suspect]
     Indication: VASCULITIS
     Dosage: 4 IN 28 D
     Dates: start: 20111122, end: 20111213
  5. ASPIRINE [Suspect]
     Indication: GOUTY ARTHRITIS
     Route: 048
     Dates: start: 20120210, end: 20120220
  6. ANTIVIRALS (ANTIVIRALS) [Concomitant]
  7. ANTIBIOTICS (ANTIBIOTICS) [Concomitant]
  8. DIABETON (GLIBENCLAMIDE) [Concomitant]
  9. LANZOPRAZOL (LANSOPRAZOLE) [Concomitant]
  10. ACICLOVIR (ACICLOVIR) [Concomitant]
  11. ACTRAPID [Concomitant]
  12. CEFEPIME (CEFEPIME) [Concomitant]
  13. ZOMETA (ZOLEDRONIC ACID) [Concomitant]

REACTIONS (6)
  - Vasculitis [None]
  - Platelet disorder [None]
  - Gouty arthritis [None]
  - Pyrexia [None]
  - Renal failure chronic [None]
  - Diabetes mellitus [None]
